FAERS Safety Report 4957044-0 (Version None)
Quarter: 2006Q1

REPORT INFORMATION
  Report Type: 
  Country: None (occurrence: None)
  Receive Date: 20060323
  Receipt Date: 20060308
  Transmission Date: 20060701
  Serious: Yes (Life-Threatening, Hospitalization, Other)
  Sender: FDA-Public Use
  Company Number: IMP_2131_2006

PATIENT
  Age: 17 Year
  Sex: Male
  Weight: 95.2554 kg

DRUGS (5)
  1. MINOCYCLINE HCL [Suspect]
     Indication: ACNE
     Dosage: DF BID PO
     Route: 048
     Dates: start: 20051001, end: 20060207
  2. LAMICTAL [Concomitant]
  3. SYNTHROID [Concomitant]
  4. ALAVERT [Concomitant]
  5. PROPRANOLOL [Concomitant]

REACTIONS (9)
  - ABDOMINAL PAIN [None]
  - DISORIENTATION [None]
  - GENERAL PHYSICAL HEALTH DETERIORATION [None]
  - GINGIVAL DISCOLOURATION [None]
  - HAEMOGLOBIN DECREASED [None]
  - HAEMORRHAGE [None]
  - OESOPHAGEAL ULCER HAEMORRHAGE [None]
  - SKIN DISCOLOURATION [None]
  - URINARY TRACT INFECTION [None]
